FAERS Safety Report 22907782 (Version 2)
Quarter: 2023Q4

REPORT INFORMATION
  Report Type: Spontaneous
  Country: JP (occurrence: JP)
  Receive Date: 20230905
  Receipt Date: 20231019
  Transmission Date: 20240110
  Serious: Yes (Hospitalization, Other)
  Sender: FDA-Public Use
  Company Number: JP-PFIZER INC-PV202300148599

PATIENT
  Age: 77 Year
  Sex: Female
  Weight: 42 kg

DRUGS (10)
  1. RHEUMATREX [Suspect]
     Active Substance: METHOTREXATE SODIUM
     Dosage: TWICE A DAY ON SATURDAY AFTER MORNING AND EVENING MEAL
     Route: 048
     Dates: end: 20230414
  2. ELDECALCITOL [Concomitant]
     Active Substance: ELDECALCITOL
     Dosage: UNK
     Route: 048
  3. EZETIMIBE [Concomitant]
     Active Substance: EZETIMIBE
     Dosage: UNK
     Route: 048
  4. FOLIC ACID [Concomitant]
     Active Substance: FOLIC ACID
     Dosage: UNK
     Route: 048
  5. GATIFLOXACIN [Concomitant]
     Active Substance: GATIFLOXACIN
     Dosage: UNK
     Route: 047
  6. LOXOPROFEN SODIUM [Concomitant]
     Active Substance: LOXOPROFEN SODIUM
     Dosage: UNK
  7. PIRENOXINE [Concomitant]
     Active Substance: PIRENOXINE
     Dosage: UNK
     Route: 047
  8. PROGRAF [Concomitant]
     Active Substance: TACROLIMUS
     Dosage: UNK
     Route: 048
  9. PROGRAF [Concomitant]
     Active Substance: TACROLIMUS
     Dosage: 1CP/DAY RESUMED
     Dates: start: 20230515
  10. AMLODIPINE\TELMISARTAN [Concomitant]
     Active Substance: AMLODIPINE\TELMISARTAN
     Dosage: UNK
     Route: 048

REACTIONS (3)
  - Pneumonia [Recovering/Resolving]
  - Lung opacity [Recovering/Resolving]
  - Bronchiectasis [Recovering/Resolving]

NARRATIVE: CASE EVENT DATE: 20230405
